FAERS Safety Report 7751369-1 (Version None)
Quarter: 2011Q3

REPORT INFORMATION
  Report Type: 
  Country: None (occurrence: None)
  Receive Date: 20110914
  Receipt Date: 20110115
  Transmission Date: 20111222
  Serious: No
  Sender: FDA-Public Use
  Company Number: US-BAYER-2011-005821

PATIENT
  Sex: Male
  Weight: 97.3 kg

DRUGS (1)
  1. MAGNEVIST [Suspect]
     Indication: NUCLEAR MAGNETIC RESONANCE IMAGING
     Dosage: 19 CC, LINE FLUSHED IN LEFT MEDIAN CUBITAL, MANUAL PUSH
     Route: 042
     Dates: start: 20110115, end: 20110115

REACTIONS (2)
  - URTICARIA [None]
  - PRURITUS [None]
